FAERS Safety Report 23820613 (Version 1)
Quarter: 2024Q2

REPORT INFORMATION
  Report Type: Report from Study
  Country: DE (occurrence: DE)
  Receive Date: 20240506
  Receipt Date: 20240506
  Transmission Date: 20240715
  Serious: Yes (Hospitalization)
  Sender: FDA-Public Use
  Company Number: DE-ABBVIE-5741944

PATIENT
  Age: 66 Year
  Weight: 78 kg

DRUGS (2)
  1. SKYRIZI [Suspect]
     Active Substance: RISANKIZUMAB-RZAA
     Indication: Psoriasis
     Route: 058
     Dates: start: 20230126
  2. CITALOPRAM [Concomitant]
     Active Substance: CITALOPRAM\CITALOPRAM HYDROBROMIDE
     Indication: Product used for unknown indication
     Dates: start: 2006

REACTIONS (15)
  - Sciatica [Recovered/Resolved]
  - Spinal osteoarthritis [Unknown]
  - Scoliosis [Unknown]
  - Osteochondrosis [Unknown]
  - Initial insomnia [Unknown]
  - Osteoarthritis [Unknown]
  - Vertebral lateral recess stenosis [Unknown]
  - Middle insomnia [Unknown]
  - Impaired work ability [Unknown]
  - Intervertebral disc protrusion [Unknown]
  - Chest pain [Unknown]
  - Bladder disorder [Recovered/Resolved]
  - Impaired quality of life [Unknown]
  - Fatigue [Unknown]
  - Muscular weakness [Unknown]

NARRATIVE: CASE EVENT DATE: 20231221
